FAERS Safety Report 4901559-8 (Version None)
Quarter: 2006Q1

REPORT INFORMATION
  Report Type: 
  Country: None (occurrence: None)
  Receive Date: 20060206
  Receipt Date: 20050222
  Transmission Date: 20060701
  Serious: No
  Sender: FDA-Public Use
  Company Number: US-BRISTOL-MYERS SQUIBB COMPANY-12873568

PATIENT
  Age: 43 Year
  Sex: Female

DRUGS (2)
  1. TAXOL [Suspect]
     Dates: start: 20050101
  2. RADIATION THERAPY [Concomitant]

REACTIONS (1)
  - NEUROPATHY PERIPHERAL [None]
